FAERS Safety Report 12906357 (Version 2)
Quarter: 2016Q4

REPORT INFORMATION
  Report Type: Spontaneous
  Country: US (occurrence: US)
  Receive Date: 20161103
  Receipt Date: 20161205
  Transmission Date: 20170207
  Serious: No
  Sender: FDA-Public Use
  Company Number: US-PFIZER INC-2016507985

PATIENT
  Age: 74 Year

DRUGS (4)
  1. LEVOFLOXACIN. [Suspect]
     Active Substance: LEVOFLOXACIN
  2. MOXIFLOXACIN HCL [Suspect]
     Active Substance: MOXIFLOXACIN
     Dosage: UNK
  3. CIPROFLOXACIN HCL [Suspect]
     Active Substance: CIPROFLOXACIN HYDROCHLORIDE
     Dosage: UNK
  4. AVELOX [Suspect]
     Active Substance: MOXIFLOXACIN HYDROCHLORIDE
     Dosage: UNK

REACTIONS (2)
  - Tendon pain [Unknown]
  - Drug hypersensitivity [Unknown]
